FAERS Safety Report 11223805 (Version 2)
Quarter: 2015Q3

REPORT INFORMATION
  Report Type: Spontaneous
  Country: JP (occurrence: JP)
  Receive Date: 20150629
  Receipt Date: 20150924
  Transmission Date: 20151125
  Serious: Yes (Hospitalization)
  Sender: FDA-Public Use
  Company Number: JP-009507513-1311JPN005256

PATIENT
  Age: 11 Month
  Sex: Female
  Weight: 7 kg

DRUGS (6)
  1. DIAZOXIDE CAPSULES 25 MG ^MSD^ [Suspect]
     Active Substance: DIAZOXIDE
     Dosage: 25 MG, THREE TIMES DAILY
     Route: 048
     Dates: start: 20110502, end: 20110511
  2. DIAZOXIDE CAPSULES 25 MG ^MSD^ [Suspect]
     Active Substance: DIAZOXIDE
     Dosage: 16.6 MG, THREE TIMES DAILY
     Route: 048
     Dates: start: 20110511, end: 20110926
  3. DIAZOXIDE CAPSULES 25 MG ^MSD^ [Suspect]
     Active Substance: DIAZOXIDE
     Dosage: 12.5 MG, THREE TIMES DAILY
     Route: 048
     Dates: start: 20110424, end: 20110427
  4. DIAZOXIDE CAPSULES 25 MG ^MSD^ [Suspect]
     Active Substance: DIAZOXIDE
     Dosage: 16.6 MG, THREE TIMES DAILY
     Route: 048
     Dates: start: 20110428, end: 20110501
  5. DIAZOXIDE CAPSULES 25 MG ^MSD^ [Suspect]
     Active Substance: DIAZOXIDE
     Indication: HYPOGLYCAEMIA
     Dosage: 8.3 MG, THREE TIMES DAILY
     Route: 048
     Dates: start: 20110414, end: 20110420
  6. DIAZOXIDE CAPSULES 25 MG ^MSD^ [Suspect]
     Active Substance: DIAZOXIDE
     Dosage: 10 MG, THREE TIMES DAILY
     Route: 048
     Dates: start: 20110421, end: 20110423

REACTIONS (1)
  - Pulmonary oedema [Recovered/Resolved]

NARRATIVE: CASE EVENT DATE: 20110511
